FAERS Safety Report 18570905 (Version 1)
Quarter: 2020Q4

REPORT INFORMATION
  Report Type: Report from Study
  Country: ES (occurrence: ES)
  Receive Date: 20201202
  Receipt Date: 20201202
  Transmission Date: 20210114
  Serious: Yes (Hospitalization)
  Sender: FDA-Public Use
  Company Number: ES-IPSEN BIOPHARMACEUTICALS, INC.-2020-22818

PATIENT
  Age: 63 Year
  Sex: Male

DRUGS (2)
  1. SOMATULINE AUTOGEL [Suspect]
     Active Substance: LANREOTIDE ACETATE
     Route: 058
     Dates: start: 20201117
  2. SOMATULINE AUTOGEL [Suspect]
     Active Substance: LANREOTIDE ACETATE
     Indication: CARCINOID SYNDROME
     Route: 058
     Dates: start: 2018, end: 20201117

REACTIONS (4)
  - Cholecystitis infective [Not Recovered/Not Resolved]
  - Flushing [Recovering/Resolving]
  - Off label use [Unknown]
  - Headache [Recovering/Resolving]

NARRATIVE: CASE EVENT DATE: 202011
